FAERS Safety Report 7781061-9 (Version None)
Quarter: 2011Q3

REPORT INFORMATION
  Report Type: 
  Country: None (occurrence: None)
  Receive Date: 20110927
  Receipt Date: 20110919
  Transmission Date: 20111222
  Serious: Yes (Hospitalization)
  Sender: FDA-Public Use
  Company Number: FR-PURDUE-GBR-2011-0008818

PATIENT
  Age: 23 Year
  Sex: Female

DRUGS (4)
  1. MYAMBUTOL [Concomitant]
     Dosage: 1 DF, BID
     Route: 048
     Dates: start: 20110423
  2. LYRICA [Suspect]
     Indication: PRODUCT USED FOR UNKNOWN INDICATION
     Dosage: 25 MG, TID
     Route: 048
     Dates: start: 20110423, end: 20110520
  3. RIFATER [Concomitant]
     Dosage: 1 DF,
     Route: 048
     Dates: start: 20110423
  4. OXYCODONE HCL [Suspect]
     Indication: PRODUCT USED FOR UNKNOWN INDICATION
     Dosage: UNK
     Route: 048
     Dates: start: 20110423

REACTIONS (2)
  - PANCREATITIS ACUTE [None]
  - LIPASE INCREASED [None]
